FAERS Safety Report 5100239-6 (Version None)
Quarter: 2006Q3

REPORT INFORMATION
  Report Type: 
  Country: None (occurrence: None)
  Receive Date: 20060908
  Receipt Date: 20060811
  Transmission Date: 20061208
  Serious: No
  Sender: FDA-Public Use
  Company Number: JP-MERCK-0608USA03133

PATIENT
  Age: 52 Year
  Sex: Male
  Weight: 61 kg

DRUGS (1)
  1. PROPECIA [Suspect]
     Indication: MALE PATTERN BALDNESS
     Route: 048
     Dates: start: 20060522

REACTIONS (1)
  - HYPERTENSION [None]
